FAERS Safety Report 19394712 (Version 1)
Quarter: 2021Q2

REPORT INFORMATION
  Report Type: Spontaneous
  Country: NL (occurrence: NL)
  Receive Date: 20210609
  Receipt Date: 20210609
  Transmission Date: 20210717
  Serious: Yes (Other)
  Sender: FDA-Public Use
  Company Number: NL-ACCORD-227156

PATIENT
  Age: 69 Year
  Sex: Male

DRUGS (14)
  1. METFORMIN [Concomitant]
     Active Substance: METFORMIN HYDROCHLORIDE
  2. INSULIN [Concomitant]
     Active Substance: INSULIN NOS
  3. PREDNISOLONE. [Concomitant]
     Active Substance: PREDNISOLONE
  4. SALBUTAMOL [Concomitant]
     Active Substance: ALBUTEROL
  5. SORAFENIB [Interacting]
     Active Substance: SORAFENIB
     Indication: DISEASE RECURRENCE
     Dates: start: 201906
  6. OXAZEPAM. [Concomitant]
     Active Substance: OXAZEPAM
  7. PERINDOPRIL [Concomitant]
     Active Substance: PERINDOPRIL
  8. PANTOPRAZOLE [Concomitant]
     Active Substance: PANTOPRAZOLE
  9. TACROLIMUS. [Suspect]
     Active Substance: TACROLIMUS
     Indication: IMMUNOSUPPRESSION
     Dates: start: 2019
  10. TAMSULOSIN/TAMSULOSIN HYDROCHLORIDE [Concomitant]
     Active Substance: TAMSULOSIN HYDROCHLORIDE
  11. METOPROLOL. [Concomitant]
     Active Substance: METOPROLOL
  12. SORAFENIB/SORAFENIB TOSILATE [Interacting]
     Active Substance: SORAFENIB TOSYLATE
     Indication: DISEASE RECURRENCE
     Dates: start: 2019, end: 201910
  13. TIOTROPIUM/TIOTROPIUM BROMIDE [Concomitant]
     Active Substance: TIOTROPIUM BROMIDE
  14. SORAFENIB [Interacting]
     Active Substance: SORAFENIB
     Indication: DISEASE RECURRENCE
     Dates: start: 2019

REACTIONS (2)
  - Drug interaction [Unknown]
  - Drug level decreased [Unknown]

NARRATIVE: CASE EVENT DATE: 2019
